FAERS Safety Report 5080663-0 (Version None)
Quarter: 2006Q3

REPORT INFORMATION
  Report Type: 
  Country: None (occurrence: None)
  Receive Date: 20060809
  Receipt Date: 20060724
  Transmission Date: 20061208
  Serious: Yes (Other)
  Sender: FDA-Public Use
  Company Number: 14508

PATIENT
  Age: 14 Year
  Sex: Female
  Weight: 53.6 kg

DRUGS (8)
  1. ACYCLOVIR [Suspect]
     Indication: HERPES SIMPLEX
     Dosage: 750 MG TID IV
     Route: 042
     Dates: start: 20060715, end: 20060716
  2. ACYCLOVIR [Suspect]
     Indication: HERPES SIMPLEX
     Dosage: 500 MG TID IV
     Route: 042
     Dates: start: 20060716, end: 20060717
  3. ACIC-CREAM [Suspect]
     Indication: HERPES SIMPLEX
  4. NOVALGIN /00039501/ [Suspect]
     Indication: PAIN
     Dosage: 25 DROP (S) BID PO
     Route: 048
     Dates: start: 20060715, end: 20060717
  5. URBASON /00049601/ [Suspect]
     Indication: ASTHMA
     Dosage: 4 MG DAILY PO
     Route: 048
  6. URBASON /00049601/ [Suspect]
     Indication: NEURODERMATITIS
     Dosage: 4 MG DAILY PO
     Route: 048
  7. LORATADINE [Suspect]
     Indication: ASTHMA
     Dosage: 10 MG QD PO
     Route: 048
  8. LORATADINE [Suspect]
     Indication: NEURODERMATITIS
     Dosage: 10 MG QD PO
     Route: 048

REACTIONS (1)
  - NEPHROTIC SYNDROME [None]
